FAERS Safety Report 16127069 (Version 1)
Quarter: 2019Q2

REPORT INFORMATION
  Report Type: Spontaneous
  Country: US (occurrence: US)
  Receive Date: 20190327
  Receipt Date: 20190327
  Transmission Date: 20190711
  Serious: Yes (Hospitalization)
  Sender: FDA-Public Use
  Company Number: None

PATIENT
  Sex: Male

DRUGS (11)
  1. ELIQUIS TAB 2.5MG [Concomitant]
  2. CADUET TAB 10-40MG [Concomitant]
  3. CALCIUM TAB 600MG [Concomitant]
  4. LASIX TAB 40MG [Concomitant]
  5. MULTI-VITAMIN TAB [Concomitant]
  6. VESICARE TAB 10MG [Concomitant]
  7. ABIRATERONE ACETATE. [Suspect]
     Active Substance: ABIRATERONE ACETATE
     Indication: PROSTATE CANCER
     Route: 048
     Dates: start: 20181220
  8. PREDNISONE TAB 5MG [Concomitant]
     Active Substance: PREDNISONE
  9. MYRBETRIQ TAB 50MG [Concomitant]
  10. VITAMIN D3 CAP 2000 UNT [Concomitant]
  11. RAMIPRIL CAP 10MG [Concomitant]
     Active Substance: RAMIPRIL

REACTIONS (1)
  - Cardiac operation [None]
